FAERS Safety Report 9738945 (Version 4)
Quarter: 2015Q4

REPORT INFORMATION
  Report Type: Report from Study
  Country: US (occurrence: US)
  Receive Date: 20131209
  Receipt Date: 20151026
  Transmission Date: 20160305
  Serious: Yes (Other)
  Sender: FDA-Public Use
  Company Number: US-ROCHE-1311217

PATIENT
  Age: 40 Year
  Sex: Female

DRUGS (22)
  1. DUONEB [Concomitant]
     Active Substance: ALBUTEROL SULFATE\IPRATROPIUM BROMIDE
  2. TUSSIONEX PENNKINETIC [Concomitant]
     Active Substance: CHLORPHENIRAMINE\HYDROCODONE
     Route: 048
  3. ZYRTEC [Concomitant]
     Active Substance: CETIRIZINE HYDROCHLORIDE
     Dosage: ^1 TABLET ONCE DAILY IN THE EVENING^
     Route: 065
  4. ALVESCO [Concomitant]
     Active Substance: CICLESONIDE
     Dosage: ^2 PUFFS ONCE DAILY^
     Route: 065
  5. XYZAL [Concomitant]
     Active Substance: LEVOCETIRIZINE DIHYDROCHLORIDE
     Dosage: ^1 TABLET ONCE DAILY^
     Route: 048
  6. RHINOCORT AQUA [Concomitant]
     Active Substance: BUDESONIDE
     Dosage: ^32 MCG/ACT: 1-2 SPRAYS IN EACH NOSTRIL ONCE A DAY^
     Route: 065
  7. GENTAMYCIN [Concomitant]
     Active Substance: GENTAMICIN
     Dosage: ^NASAL RINSES TWICE DAILY^
     Route: 065
  8. VENTOLIN HFA [Concomitant]
     Active Substance: ALBUTEROL SULFATE
     Indication: DYSPNOEA
     Dosage: EVERY 4-6HRS AS NEEDED
     Route: 065
  9. LEVAQUIN [Concomitant]
     Active Substance: LEVOFLOXACIN
     Dosage: ^1 TABLET ONCE A DAY FOR 10-14 DAYS^
     Route: 048
  10. DUONEB [Concomitant]
     Active Substance: ALBUTEROL SULFATE\IPRATROPIUM BROMIDE
     Dosage: 0.5-2.5 MG/ML NEBULIZE EVERY 4-6HRS AS NEEDED
     Route: 065
  11. XOLAIR [Suspect]
     Active Substance: OMALIZUMAB
     Indication: ASTHMA
     Dosage: ^BEEN ON XOLAIR THERAPY IN PAST APPROX. 8 YRS AGO^
     Route: 058
  12. ALBUTEROL. [Concomitant]
     Active Substance: ALBUTEROL
     Dosage: EVERY 4-6HRS, AND 20MIN PRIOR TO EXERCISE
     Route: 065
  13. NEXIUM [Concomitant]
     Active Substance: ESOMEPRAZOLE MAGNESIUM
     Dosage: ^TAKE 1 TABLET IN MORNING 30MIN PRIOR TO EATING^
     Route: 065
  14. PREDNISONE. [Concomitant]
     Active Substance: PREDNISONE
     Route: 048
  15. QVAR [Concomitant]
     Active Substance: BECLOMETHASONE DIPROPIONATE
  16. BUDESONIDE. [Concomitant]
     Active Substance: BUDESONIDE
  17. ZITHROMAX [Concomitant]
     Active Substance: AZITHROMYCIN DIHYDRATE
  18. OMNARIS [Concomitant]
     Active Substance: CICLESONIDE
     Dosage: ^2 SPRAYS IN EACH NOSTRIL ONCE DAILY^
     Route: 065
  19. SINGULAIR [Concomitant]
     Active Substance: MONTELUKAST SODIUM
     Dosage: ^1 TABLET ONCE DAILY AT BEDTIME^
     Route: 048
  20. ADVAIR HFA [Concomitant]
     Active Substance: FLUTICASONE PROPIONATE\SALMETEROL XINAFOATE
     Dosage: 500/50 MCG, ^2 PUFFS TWICE DAILY^
     Route: 065
  21. CLARITIN [Concomitant]
     Active Substance: LORATADINE
  22. CIPRODEX (UNITED STATES) [Concomitant]

REACTIONS (43)
  - Vasomotor rhinitis [Unknown]
  - Chest discomfort [Unknown]
  - Otorrhoea [Unknown]
  - Nasal oedema [Unknown]
  - Cough [Unknown]
  - Tympanic membrane hyperaemia [Unknown]
  - Back pain [Unknown]
  - Pneumonia [Unknown]
  - Oropharyngeal pain [Unknown]
  - Acute sinusitis [Unknown]
  - Ear pain [Unknown]
  - Tinnitus [Unknown]
  - Laryngitis [Unknown]
  - Upper-airway cough syndrome [Unknown]
  - Nasal obstruction [Unknown]
  - Dyspnoea [Unknown]
  - Paranasal sinus discomfort [Unknown]
  - Pruritus [Unknown]
  - Obstructive airways disorder [Unknown]
  - Burning sensation [Unknown]
  - Exposure during pregnancy [Unknown]
  - Wheezing [Unknown]
  - Snoring [Unknown]
  - Sinusitis [Unknown]
  - Headache [Unknown]
  - Rhinorrhoea [Unknown]
  - Otitis media [Unknown]
  - Productive cough [Unknown]
  - Ear discomfort [Unknown]
  - Throat irritation [Unknown]
  - Sneezing [Unknown]
  - Scar [Unknown]
  - Myringotomy [Unknown]
  - Pyrexia [Unknown]
  - Asthma [Unknown]
  - Peak expiratory flow rate decreased [Unknown]
  - Tympanic membrane perforation [Unknown]
  - Costochondritis [Unknown]
  - Dry skin [Unknown]
  - Oropharyngeal pain [Unknown]
  - Nasal congestion [Unknown]
  - Secretion discharge [Unknown]
  - Dyspnoea [Unknown]

NARRATIVE: CASE EVENT DATE: 20111101
